FAERS Safety Report 5258117-8 (Version None)
Quarter: 2007Q1

REPORT INFORMATION
  Report Type: 
  Country: None (occurrence: None)
  Receive Date: 20070307
  Receipt Date: 20070223
  Transmission Date: 20070707
  Serious: Yes (Hospitalization)
  Sender: FDA-Public Use
  Company Number: DE-PFIZER INC-2007014287

PATIENT
  Sex: Male
  Weight: 115 kg

DRUGS (17)
  1. COMBACTAM [Suspect]
     Indication: ERYSIPELAS
     Dosage: DAILY DOSE:3000MG
     Route: 042
     Dates: start: 20051126, end: 20051207
  2. PIPRIL [Suspect]
     Route: 042
     Dates: start: 20051126, end: 20051207
  3. TORSEMIDE [Concomitant]
     Route: 048
     Dates: start: 20051129, end: 20051207
  4. NOVODIGAL [Concomitant]
     Route: 048
     Dates: start: 20051128, end: 20051207
  5. NEXIUM [Concomitant]
     Route: 048
     Dates: start: 20051127, end: 20051207
  6. MARCUMAR [Concomitant]
     Route: 048
     Dates: start: 20051125, end: 20051206
  7. CARVEDILOL [Concomitant]
     Route: 048
     Dates: start: 20051202, end: 20051207
  8. CLEXANE [Concomitant]
     Route: 058
     Dates: start: 20051130, end: 20051207
  9. RAMIPRIL [Concomitant]
     Route: 048
  10. TRANXILIUM [Concomitant]
     Dates: start: 20051127, end: 20051207
  11. LASIX [Concomitant]
     Route: 048
  12. UROXATRAL [Concomitant]
     Route: 048
  13. ISOPTIN [Concomitant]
     Route: 042
     Dates: start: 20051127, end: 20051127
  14. AUGMENTIN [Concomitant]
     Route: 048
     Dates: start: 20051125, end: 20051125
  15. METRONIDAZOLE [Concomitant]
     Dates: start: 20051126, end: 20051129
  16. HEPARIN-NATRIUM ^BRAUN^ [Concomitant]
     Route: 042
     Dates: start: 20051125, end: 20051130
  17. INFLUENZA VIRUS VACCINE [Concomitant]
     Dates: start: 20050101, end: 20050101

REACTIONS (1)
  - AUTOIMMUNE THROMBOCYTOPENIA [None]
